FAERS Safety Report 15261091 (Version 1)
Quarter: 2018Q3

REPORT INFORMATION
  Report Type: Spontaneous
  Country: CA (occurrence: CA)
  Receive Date: 20180809
  Receipt Date: 20180809
  Transmission Date: 20181010
  Serious: Yes (Other)
  Sender: FDA-Public Use
  Company Number: CA-TEVA-2018-CA-936185

PATIENT
  Age: 25 Year
  Sex: Male
  Weight: 78 kg

DRUGS (24)
  1. GENTEAL MILD [Concomitant]
     Active Substance: HYPROMELLOSE 2910 (4000 MPA.S)
  2. OTRIVIN [Concomitant]
     Active Substance: XYLOMETAZOLINE
  3. VITAMIN D [Concomitant]
     Active Substance: CHOLECALCIFEROL
  4. PANTOPRAZOLE [Suspect]
     Active Substance: PANTOPRAZOLE
     Indication: GASTROOESOPHAGEAL REFLUX DISEASE
     Route: 048
  5. DICLOFENAC [Concomitant]
     Active Substance: DICLOFENAC
  6. CALCIUM [Concomitant]
     Active Substance: CALCIUM
  7. CETAPHIL DAILY FACIAL MOISTURIZER (SPF 50) [Concomitant]
  8. FLOVENT HFA [Concomitant]
     Active Substance: FLUTICASONE PROPIONATE
  9. AZITHROMYCIN ANHYDROUS. [Concomitant]
     Active Substance: AZITHROMYCIN ANHYDROUS
  10. CIPRALEX ?10MG [Concomitant]
     Indication: HYPERTONIC BLADDER
  11. NASOCORT [Concomitant]
     Active Substance: BUDESONIDE
  12. TECTA [Concomitant]
     Active Substance: PANTOPRAZOLE MAGNESIUM
  13. ACZONE [Concomitant]
     Active Substance: DAPSONE
  14. BENZACLIN [Concomitant]
     Active Substance: BENZOYL PEROXIDE\CLINDAMYCIN PHOSPHATE
  15. OMEGA 3?6?9 [Concomitant]
     Active Substance: FISH OIL
  16. TYLENOL [Concomitant]
     Active Substance: ACETAMINOPHEN
  17. TYLENOL #1 (CANADA) [Concomitant]
     Active Substance: ACETAMINOPHEN\CAFFEINE\CODEINE PHOSPHATE
  18. SYNTHROID [Concomitant]
     Active Substance: LEVOTHYROXINE SODIUM
  19. TEARS PLUS [Concomitant]
     Route: 047
  20. ZINC GLUCONATE [Concomitant]
     Active Substance: ZINC GLUCONATE
  21. EPIVAL [Concomitant]
     Active Substance: DIVALPROEX SODIUM
  22. SEROQUEL [Concomitant]
     Active Substance: QUETIAPINE FUMARATE
  23. TOVIAZ [Concomitant]
     Active Substance: FESOTERODINE FUMARATE
  24. ZYLOPRIM [Concomitant]
     Active Substance: ALLOPURINOL

REACTIONS (3)
  - General physical health deterioration [Recovered/Resolved]
  - Mental impairment [Recovered/Resolved]
  - Product substitution issue [Recovered/Resolved]
